FAERS Safety Report 17018403 (Version 7)
Quarter: 2020Q1

REPORT INFORMATION
  Report Type: Report from Study
  Country: US (occurrence: US)
  Receive Date: 20191111
  Receipt Date: 20200327
  Transmission Date: 20200409
  Serious: Yes (Other)
  Sender: FDA-Public Use
  Company Number: US-AMGEN-USASL2019180135

PATIENT
  Age: 66 Year
  Sex: Female

DRUGS (2)
  1. ENBREL [Suspect]
     Active Substance: ETANERCEPT
     Indication: RHEUMATOID ARTHRITIS
     Dosage: 50 MILLIGRAM, QWK
     Route: 065
  2. ENBREL [Suspect]
     Active Substance: ETANERCEPT
     Dosage: 50 MILLIGRAM, QWK
     Route: 065

REACTIONS (8)
  - Accidental exposure to product [Unknown]
  - Device use error [Unknown]
  - Breast cancer [Not Recovered/Not Resolved]
  - Breast abscess [Unknown]
  - Device defective [Unknown]
  - Skin laceration [Unknown]
  - Cyst [Not Recovered/Not Resolved]
  - Abscess limb [Unknown]
